FAERS Safety Report 13768282 (Version 1)
Quarter: 2017Q3

REPORT INFORMATION
  Report Type: Spontaneous
  Country: PE (occurrence: PE)
  Receive Date: 20170719
  Receipt Date: 20170719
  Transmission Date: 20171127
  Serious: Yes (Other)
  Sender: FDA-Public Use
  Company Number: PE-TEVA-788998USA

PATIENT
  Age: 34 Year
  Sex: Male

DRUGS (1)
  1. AMRIX [Suspect]
     Active Substance: CYCLOBENZAPRINE HYDROCHLORIDE
     Indication: MUSCLE SPASMS
     Dosage: 15 MILLIGRAM DAILY;
     Route: 048
     Dates: start: 201703, end: 201703

REACTIONS (3)
  - Vision blurred [Not Recovered/Not Resolved]
  - Chorioretinopathy [Unknown]
  - Visual acuity reduced [Recovering/Resolving]

NARRATIVE: CASE EVENT DATE: 201703
